FAERS Safety Report 4957990-8 (Version None)
Quarter: 2006Q1

REPORT INFORMATION
  Report Type: 
  Country: None (occurrence: None)
  Receive Date: 20060324
  Receipt Date: 20060310
  Transmission Date: 20060701
  Serious: Yes (Hospitalization)
  Sender: FDA-Public Use
  Company Number: SE200603002813

PATIENT
  Age: 13 Year
  Sex: Female

DRUGS (3)
  1. ZYPREXA [Suspect]
     Indication: ANOREXIA
     Dosage: 5 + 7.5  MG, DAILY (1/D), ORAL
     Route: 048
     Dates: start: 20050101, end: 20050101
  2. ZYPREXA [Suspect]
     Indication: ANOREXIA
     Dosage: 5 + 7.5  MG, DAILY (1/D), ORAL
     Route: 048
     Dates: start: 20060201
  3. ZOLOFT [Concomitant]

REACTIONS (5)
  - ALANINE AMINOTRANSFERASE INCREASED [None]
  - ANOREXIA [None]
  - ASPARTATE AMINOTRANSFERASE INCREASED [None]
  - CONDITION AGGRAVATED [None]
  - MENTAL DISORDER [None]
